FAERS Safety Report 11188634 (Version 1)
Quarter: 2015Q2

REPORT INFORMATION
  Report Type: Spontaneous
  Country: GB (occurrence: GB)
  Receive Date: 20150615
  Receipt Date: 20150615
  Transmission Date: 20150821
  Serious: Yes (Hospitalization)
  Sender: FDA-Public Use
  Company Number: GB-TEVA-569187ACC

PATIENT
  Age: 79 Year

DRUGS (6)
  1. INDAPAMIDE. [Suspect]
     Active Substance: INDAPAMIDE
     Dosage: 2.5 MILLIGRAM DAILY;
     Route: 048
  2. BETAXOLOL [Concomitant]
     Active Substance: BETAXOLOL
     Route: 061
  3. DONEPEZIL [Concomitant]
     Active Substance: DONEPEZIL
     Dosage: 10 MILLIGRAM DAILY;
     Route: 048
  4. SIMVASTATIN. [Concomitant]
     Active Substance: SIMVASTATIN
     Dosage: 40 MILLIGRAM DAILY; NIGHTLY; DAILY DOSE: 40MILLIGRAM
     Route: 048
  5. LATANOPROST. [Concomitant]
     Active Substance: LATANOPROST
     Dosage: 1 GTT DAILY; NIGHTLY; DAILY DOSE: 1 GTT
  6. ASPIRIN. [Concomitant]
     Active Substance: ASPIRIN
     Dosage: 75 MILLIGRAM DAILY;
     Route: 048

REACTIONS (2)
  - Fall [Unknown]
  - Orthostatic hypotension [Recovering/Resolving]
